FAERS Safety Report 21603867 (Version 3)
Quarter: 2023Q1

REPORT INFORMATION
  Report Type: Report from Study
  Country: GB (occurrence: GB)
  Receive Date: 20221116
  Receipt Date: 20230116
  Transmission Date: 20230417
  Serious: Yes (Death, Other)
  Sender: FDA-Public Use
  Company Number: GB-ROCHE-3127552

PATIENT
  Age: 62 Year
  Sex: Female

DRUGS (25)
  1. DOCETAXEL [Suspect]
     Active Substance: DOCETAXEL
     Indication: Breast cancer metastatic
     Dosage: 140 MG, EVERY 3 WEEKS
     Route: 042
     Dates: start: 20150507, end: 20150520
  2. DOCETAXEL [Suspect]
     Active Substance: DOCETAXEL
     Dosage: 140 MG, 1X/DAY EVERY 3 WEEKS
     Route: 042
     Dates: start: 20150528
  3. TRASTUZUMAB [Suspect]
     Active Substance: TRASTUZUMAB
     Indication: Breast cancer metastatic
     Dosage: 651 MG, 1X/DAY
     Route: 041
     Dates: start: 20150507, end: 20150507
  4. TRASTUZUMAB [Suspect]
     Active Substance: TRASTUZUMAB
     Dosage: 483 MG, EVERY 3 WEEKS
  5. TRASTUZUMAB [Suspect]
     Active Substance: TRASTUZUMAB
     Dosage: UNK, 3X/DAY
     Dates: start: 20170724, end: 20170904
  6. ERIBULIN [Suspect]
     Active Substance: ERIBULIN
     Indication: Breast cancer metastatic
     Dosage: 1.2 MG/M2, CYCLIC DAY 1 AND 8 OF 3 WEEKLY CYCLE
     Route: 042
     Dates: start: 20171024, end: 20180614
  7. FULVESTRANT [Suspect]
     Active Substance: FULVESTRANT
     Indication: Breast cancer metastatic
     Dosage: 500 MG, MONTHLY (EVERY 4 WEEK)
     Route: 030
     Dates: start: 20180725, end: 20190109
  8. PERTUZUMAB [Suspect]
     Active Substance: PERTUZUMAB
     Indication: Breast cancer metastatic
     Dosage: 840 MG, 1X/DAY SUBSEQUENT DOSE ON 420 MG (EVERY THREE WEEK)
     Route: 042
     Dates: start: 20150506
  9. PERTUZUMAB [Suspect]
     Active Substance: PERTUZUMAB
     Dosage: 420 MG, ONCE A DAY EVERY 3 WEEKS
     Dates: start: 20150528, end: 20150528
  10. ADO-TRASTUZUMAB EMTANSINE [Suspect]
     Active Substance: ADO-TRASTUZUMAB EMTANSINE
     Indication: Breast cancer metastatic
     Dosage: 285 MG, EVERY 3 WEEKS
     Route: 042
     Dates: start: 20161215, end: 20170608
  11. DALTEPARIN [Concomitant]
     Active Substance: DALTEPARIN
     Dosage: 1 DF, DAILY
     Route: 058
     Dates: start: 20160427, end: 20160505
  12. DEXAMETHASONE [Concomitant]
     Active Substance: DEXAMETHASONE
     Indication: Metastases to central nervous system
     Dosage: 1 MG, 1X/DAY
     Route: 048
     Dates: start: 20150322
  13. EPILIM [Concomitant]
     Active Substance: VALPROATE SODIUM
     Dosage: 300 MG, 2X/DAY
     Route: 048
     Dates: start: 20150322
  14. FUROSEMIDE [Concomitant]
     Active Substance: FUROSEMIDE
     Dosage: 40 MG, 4X/DAY
     Route: 048
  15. HYDROCORTISONE [Concomitant]
     Active Substance: HYDROCORTISONE
     Dosage: 5 MG, 3X/DAY
     Route: 048
  16. CIPROFLOXACIN [Concomitant]
     Active Substance: CIPROFLOXACIN
     Dosage: 1 DROP, SINGLE 2 HOURS
     Route: 047
     Dates: start: 20171228
  17. GENTAMICIN [Concomitant]
     Active Substance: GENTAMICIN
     Dosage: 1 DROP, SINGLE 4 HOURS
     Route: 047
  18. CYCLOPENTOLATE [Concomitant]
     Active Substance: CYCLOPENTOLATE
     Dosage: 1 DROP 1 GTT, PERSISTENT 1 DAYS
     Route: 047
  19. DOXYCYCLINE [Concomitant]
     Active Substance: DOXYCYCLINE
     Dosage: 100 MG, SINGLE 1 DAYS
     Route: 048
  20. CHLORAMPHENICOL [Concomitant]
     Active Substance: CHLORAMPHENICOL
     Dosage: UNK, SINGLE 1 DAYS
     Route: 047
  21. FLUCLOXACILLIN [Concomitant]
     Active Substance: FLUCLOXACILLIN
     Dosage: 500 MG 1 DAYS
     Route: 048
     Dates: start: 20160403
  22. DERMOL [BENZALKONIUM CHLORIDE;CHLORHEXIDINE HYDROCHLORIDE;ISOPROPYL MY [Concomitant]
     Dosage: 1 OTHER
     Route: 061
  23. PIPERACILLIN SODIUM\TAZOBACTAM SODIUM [Concomitant]
     Active Substance: PIPERACILLIN SODIUM\TAZOBACTAM SODIUM
     Dosage: 4.5 G
     Route: 042
     Dates: start: 20160116
  24. PENICILLIN G [Concomitant]
     Active Substance: PENICILLIN G
     Dosage: 1.2 G 1 DAYS
     Route: 042
  25. VANCOMYCIN [Concomitant]
     Active Substance: VANCOMYCIN
     Dosage: 1 G MULTIPLE 1 DAYS
     Route: 042

REACTIONS (1)
  - Death [Fatal]

NARRATIVE: CASE EVENT DATE: 20190522
